FAERS Safety Report 20007439 (Version 2)
Quarter: 2021Q4

REPORT INFORMATION
  Report Type: Spontaneous
  Country: US (occurrence: US)
  Receive Date: 20211028
  Receipt Date: 20211117
  Transmission Date: 20220303
  Serious: Yes (Other)
  Sender: FDA-Public Use
  Company Number: US-AMGEN-USASP2021164376

PATIENT
  Age: 12 Year
  Sex: Female

DRUGS (23)
  1. BLINCYTO [Suspect]
     Active Substance: BLINATUMOMAB
     Indication: Acute lymphocytic leukaemia
     Dosage: 15 MICROGRAM/SQ. METER, QD
     Route: 042
     Dates: start: 202110
  2. BLINCYTO [Suspect]
     Active Substance: BLINATUMOMAB
     Dosage: 66 MICROGRAM, QWK (72 HR INFUSION)
     Route: 042
  3. BLINCYTO [Suspect]
     Active Substance: BLINATUMOMAB
     Dosage: 88 MICROGRAM, QWK
     Route: 042
  4. TYLENOL [Concomitant]
     Active Substance: ACETAMINOPHEN
     Dosage: 650 MILLIGRAM, Q6H, AS REQUIRED
     Route: 048
  5. NORVASC [Concomitant]
     Active Substance: AMLODIPINE BESYLATE
     Dosage: 5 MILLIGRAM, QD
     Route: 048
  6. BACITRACIN [Concomitant]
     Active Substance: BACITRACIN
     Dosage: UNK UNK, BID
     Route: 061
  7. LIDOCAINE [Concomitant]
     Active Substance: LIDOCAINE
     Dosage: 0.2 MILLILITER, BUFFERED J-TIP SOLUTION, AS REQUIRED
     Route: 023
  8. LIDOCAINE [Concomitant]
     Active Substance: LIDOCAINE
     Dosage: 3 MILLILITER, 1 PERCENT
     Route: 023
  9. PERIDEX [CHLORHEXIDINE GLUCONATE] [Concomitant]
     Dosage: 15 MILLILITER, TID (0.12 PERCENT)
  10. BENADRYL [Concomitant]
     Active Substance: DIPHENHYDRAMINE HYDROCHLORIDE
     Dosage: 50 MILLIGRAM, AS REQUIRED
     Route: 042
  11. BENADRYL [Concomitant]
     Active Substance: DIPHENHYDRAMINE HYDROCHLORIDE
     Dosage: 25 MILLIGRAM, Q4H (AS REQUIRED)
     Route: 048
  12. ADRENALIN (EPINEPHRINE) [Concomitant]
     Active Substance: EPINEPHRINE
     Dosage: 0.5 MILLIGRAM, Q5MIN (AS REQUIRED)
     Route: 030
  13. NEURONTIN [Concomitant]
     Active Substance: GABAPENTIN
     Dosage: 300 MILLIGRAM, QD
     Route: 048
  14. HEPARIN [Concomitant]
     Active Substance: HEPARIN SODIUM
     Dosage: 2 MILLILITER, QD (LOCK FLUSH 10 UNIT/ML SOLUTION 20 UNITS)
     Route: 042
  15. HEPARIN [Concomitant]
     Active Substance: HEPARIN SODIUM
     Dosage: 2 MILLILITER, AS REQUIRED (LOCK FLUSH 10 UNIT/ML SOLUTION 20 UNITS)
     Route: 042
  16. SOLU-CORTEF [Concomitant]
     Active Substance: HYDROCORTISONE SODIUM SUCCINATE
     Dosage: 100 MILLIGRAM, AS REQUIRED
     Route: 042
  17. GLEEVEC [Concomitant]
     Active Substance: IMATINIB MESYLATE
     Dosage: 200 MILLIGRAM, QD
     Route: 048
  18. ZOFRAN [Concomitant]
     Active Substance: ONDANSETRON HYDROCHLORIDE
     Dosage: 8 MILLIGRAM, Q8H, AS REQUIRED
     Route: 048
  19. GLYCOLAX [Concomitant]
     Active Substance: POLYETHYLENE GLYCOL 3350
     Dosage: 17 GRAM, AS REQUIRED
     Route: 048
  20. NOXAFIL [Concomitant]
     Active Substance: POSACONAZOLE
     Dosage: 200 MILLIGRAM, QD
     Route: 048
  21. KLOR-CON [Concomitant]
     Active Substance: POTASSIUM CHLORIDE
     Dosage: 20 MILLIEQUIVALENT, QD
     Route: 048
  22. PHENERGAN [Concomitant]
     Active Substance: PROMETHAZINE HYDROCHLORIDE
     Dosage: 25 MILLIGRAM, Q4H (0.5 MG/KG)
     Route: 048
  23. SULFAMETHOXAZOLE\TRIMETHOPRIM [Concomitant]
     Active Substance: SULFAMETHOXAZOLE\TRIMETHOPRIM
     Dosage: 1 TABLET, BID
     Route: 048

REACTIONS (1)
  - Seizure [Recovered/Resolved]

NARRATIVE: CASE EVENT DATE: 20211001
